FAERS Safety Report 16068803 (Version 1)
Quarter: 2019Q1

REPORT INFORMATION
  Report Type: Report from Study
  Country: DE (occurrence: DE)
  Receive Date: 20190313
  Receipt Date: 20190313
  Transmission Date: 20190418
  Serious: Yes (Other)
  Sender: FDA-Public Use
  Company Number: DE-INCYTE CORPORATION-2019IN002188

PATIENT

DRUGS (14)
  1. SALBUTAMOL [Concomitant]
     Active Substance: ALBUTEROL
     Indication: CHRONIC OBSTRUCTIVE PULMONARY DISEASE
     Dosage: 5 MG, UNK
     Route: 065
     Dates: start: 20151022
  2. NEUREXAN [Concomitant]
     Active Substance: HOMEOPATHICS
     Indication: SLEEP DISORDER
     Dosage: UNK
     Route: 048
     Dates: start: 20160726, end: 20170703
  3. DEKRISTOL [Concomitant]
     Active Substance: CHOLECALCIFEROL
     Indication: VITAMIN SUPPLEMENTATION
     Dosage: 20000 IU, UNK
     Route: 048
     Dates: start: 20160726, end: 20170703
  4. BISOPROLOL [Concomitant]
     Active Substance: BISOPROLOL
     Indication: SLEEP DISORDER
     Dosage: UNK
     Route: 065
  5. EDOXABAN [Concomitant]
     Active Substance: EDOXABAN TOSYLATE
     Indication: ANTICOAGULANT THERAPY
     Dosage: 30 MG, UNK
     Route: 065
     Dates: start: 20170704
  6. BUSCOPAN [Concomitant]
     Active Substance: BUTYLSCOPOLAMINE BROMIDE
     Indication: PAIN
     Dosage: 10 MG, UNK
     Route: 048
     Dates: start: 20160726, end: 20161031
  7. JAKAVI [Suspect]
     Active Substance: RUXOLITINIB
     Indication: POLYCYTHAEMIA VERA
     Dosage: UNK
     Route: 065
  8. PANTOZOL [Concomitant]
     Active Substance: PANTOPRAZOLE SODIUM
     Indication: GASTROOESOPHAGEAL REFLUX DISEASE
     Dosage: 40 MG, UNK
     Route: 048
     Dates: start: 20161101, end: 20170703
  9. TILIDIN COMP [Concomitant]
     Active Substance: NALOXONE HYDROCHLORIDE\TILIDINE HYDROCHLORIDE
     Indication: PAIN
     Dosage: 50 MG, UNK
     Route: 048
     Dates: start: 20160726, end: 20170703
  10. NOVAMINSULFON [Concomitant]
     Active Substance: METAMIZOLE
     Indication: PAIN
     Dosage: 500 MG, UNK
     Route: 065
     Dates: start: 20161101
  11. CEFASEL [Concomitant]
     Indication: PROPHYLAXIS
     Dosage: 100 UG, UNK
     Route: 065
     Dates: start: 20170221, end: 20170703
  12. ASPIRIN. [Concomitant]
     Active Substance: ASPIRIN
     Indication: PROPHYLAXIS
     Dosage: 100 MG, UNK
     Route: 065
     Dates: start: 20161101, end: 20170703
  13. METOPROLOL. [Concomitant]
     Active Substance: METOPROLOL
     Indication: HYPERTENSION
     Dosage: 47.5 MG, UNK
     Route: 048
     Dates: start: 20170703
  14. KRAUTERLAX [Concomitant]
     Indication: CONSTIPATION
     Dosage: 15 MG, UNK
     Route: 065
     Dates: start: 20161101, end: 20170703

REACTIONS (1)
  - Leukaemia [Unknown]
